FAERS Safety Report 8337160-6 (Version None)
Quarter: 2012Q2

REPORT INFORMATION
  Report Type: 
  Country: None (occurrence: None)
  Receive Date: 20120504
  Receipt Date: 20120425
  Transmission Date: 20120825
  Serious: Yes (Other)
  Sender: FDA-Public Use
  Company Number: PHHY2012ZA029055

PATIENT
  Age: 60 Year
  Sex: Male

DRUGS (10)
  1. SIMVASTATIN [Concomitant]
     Dosage: 10 MG, DAILY
  2. ALPRAZOLAM [Concomitant]
     Indication: ANXIETY
     Dosage: UKN, EVERY SECOND OR THIRD NIGHT
  3. VOLTAREN [Concomitant]
     Dosage: 25 MG, BID
  4. MYPRODOL [Concomitant]
  5. METFORMIN HCL [Concomitant]
     Dosage: 850 MG, BID
  6. DIOVAN HCT [Suspect]
     Indication: HYPERTENSION
     Dosage: 160 MG VALS AND UNKNOWN HYDRO
  7. VALSARTAN  AND HYDROCHLOROTHIAZIDE [Suspect]
     Indication: HYPERTENSION
     Dosage: 1 DF, DAILY (160 MG VALS AND 12.5 HYDRO)
     Dates: start: 20110601
  8. GEN-PAYNE [Concomitant]
     Dosage: 10 MG CODA, 200 MG IBO AND 250 MG PARA)
  9. AMLOC [Concomitant]
     Dosage: UNK
  10. SPASMEND [Concomitant]
     Dosage: (150 MG MEPHENSIN AND 500 MG PARA)

REACTIONS (3)
  - HEADACHE [None]
  - STRESS [None]
  - DIABETES MELLITUS [None]
